FAERS Safety Report 11598973 (Version 1)
Quarter: 2015Q4

REPORT INFORMATION
  Report Type: Spontaneous
  Country: DE (occurrence: DE)
  Receive Date: 20151006
  Receipt Date: 20151006
  Transmission Date: 20160304
  Serious: Yes (Hospitalization, Other)
  Sender: FDA-Public Use
  Company Number: DE-GLAXOSMITHKLINE-DE2015GSK093501

PATIENT
  Age: 81 Year
  Sex: Male

DRUGS (6)
  1. VOTRIENT [Suspect]
     Active Substance: PAZOPANIB HYDROCHLORIDE
     Indication: METASTASES TO LUNG
     Dosage: 200 MG, UNK
     Dates: start: 20150521, end: 20150527
  2. VOTRIENT [Suspect]
     Active Substance: PAZOPANIB HYDROCHLORIDE
     Indication: RENAL CELL CARCINOMA RECURRENT
     Dosage: UNK
     Route: 048
     Dates: start: 20150506, end: 20150520
  3. AFINITOR [Suspect]
     Active Substance: EVEROLIMUS
     Indication: METASTASES TO LUNG
  4. TAMSULOSIN [Concomitant]
     Active Substance: TAMSULOSIN
     Indication: PRODUCT USED FOR UNKNOWN INDICATION
     Dosage: 0.4 MG, QD
  5. UNACID [Suspect]
     Active Substance: AMPICILLIN SODIUM\SULBACTAM SODIUM
     Indication: VIRAL INFECTION
     Dosage: UNK
     Route: 042
     Dates: start: 20150516, end: 20150520
  6. AFINITOR [Suspect]
     Active Substance: EVEROLIMUS
     Indication: RENAL CELL CARCINOMA RECURRENT
     Dosage: UNK
     Route: 048
     Dates: start: 20150617, end: 20150623

REACTIONS (7)
  - Disorientation [Recovered/Resolved]
  - Ataxia [Unknown]
  - Rash [Recovered/Resolved]
  - Visual impairment [Unknown]
  - General physical health deterioration [Unknown]
  - Aphasia [Unknown]
  - Personality change [Unknown]

NARRATIVE: CASE EVENT DATE: 201505
